FAERS Safety Report 9171084 (Version 1)
Quarter: 2013Q1

REPORT INFORMATION
  Report Type: Spontaneous
  Country: DE (occurrence: None)
  Receive Date: 20130312
  Receipt Date: 20130312
  Transmission Date: 20140127
  Serious: Yes (Hospitalization)
  Sender: FDA-Public Use
  Company Number: FK201300748

PATIENT
  Age: 66 Year
  Sex: Female
  Weight: 68 kg

DRUGS (2)
  1. PACLITAXEL [Suspect]
     Indication: OVARIAN CANCER
     Route: 042
     Dates: start: 20120613, end: 20120704
  2. CARBO BENDALIS [Suspect]
     Indication: OVARIAN CANCER
     Route: 042
     Dates: start: 20120613, end: 20120704

REACTIONS (4)
  - Back pain [None]
  - Bronchospasm [None]
  - Chest discomfort [None]
  - Pruritus [None]
